FAERS Safety Report 22534018 (Version 2)
Quarter: 2023Q2

REPORT INFORMATION
  Report Type: Other
  Country: IN (occurrence: None)
  Receive Date: 20230608
  Receipt Date: 20230609
  Transmission Date: 20230722
  Serious: Yes (Other)
  Sender: FDA-Public Use
  Company Number: IN-ROCHE-3360789

PATIENT
  Age: 66 Year
  Sex: Female

DRUGS (1)
  1. TRASTUZUMAB [Suspect]
     Active Substance: TRASTUZUMAB
     Indication: Breast cancer
     Dosage: LAST DOSE ADMINISTERED ON 13/APR/2023.
     Route: 042
     Dates: start: 20221031

REACTIONS (6)
  - Pain [Unknown]
  - Burning sensation [Unknown]
  - Malaise [Unknown]
  - Neuropathy peripheral [Unknown]
  - Musculoskeletal disorder [Unknown]
  - Connective tissue disorder [Unknown]
